FAERS Safety Report 13675710 (Version 1)
Quarter: 2017Q2

REPORT INFORMATION
  Report Type: Spontaneous
  Country: US (occurrence: US)
  Receive Date: 20170621
  Receipt Date: 20170621
  Transmission Date: 20170830
  Serious: No
  Sender: FDA-Public Use
  Company Number: US-009507513-1706USA000474

PATIENT
  Sex: Female

DRUGS (3)
  1. PREDNISONE. [Suspect]
     Active Substance: PREDNISONE
     Route: 048
  2. VIOXX [Suspect]
     Active Substance: ROFECOXIB
     Route: 048
  3. ZOCOR [Suspect]
     Active Substance: SIMVASTATIN
     Route: 048

REACTIONS (1)
  - Drug hypersensitivity [Unknown]
